FAERS Safety Report 5163227-X (Version None)
Quarter: 2006Q4

REPORT INFORMATION
  Report Type: 
  Country: None (occurrence: None)
  Receive Date: 20061204
  Receipt Date: 20060824
  Transmission Date: 20070319
  Serious: Yes (Hospitalization)
  Sender: FDA-Public Use
  Company Number: US-ELI_LILLY_AND_COMPANY-US200609000258

PATIENT
  Age: 67 Year
  Sex: Male
  Weight: 86.167 kg

DRUGS (1)
  1. ZYPREXA [Suspect]
     Dosage: 2.5 MG, UNK
     Dates: start: 20050401, end: 20050601

REACTIONS (5)
  - ANGIOPATHY [None]
  - ANGIOPLASTY [None]
  - DIABETES MELLITUS [None]
  - HYPERGLYCAEMIA [None]
  - WEIGHT DECREASED [None]
